FAERS Safety Report 8446964-0 (Version None)
Quarter: 2012Q2

REPORT INFORMATION
  Report Type: 
  Country: None (occurrence: None)
  Receive Date: 20120613
  Receipt Date: 20120613
  Transmission Date: 20120825
  Serious: Yes (Other)
  Sender: FDA-Public Use
  Company Number: None

PATIENT
  Age: 38 Year
  Sex: Female
  Weight: 91.6266 kg

DRUGS (1)
  1. ALBREVA DOCOSANOL 10% GLAXOSMITHKLINE CONSUMER HEALTH [Suspect]
     Indication: ORAL HERPES
     Dosage: 1 5 TIMES DAILY TOP
     Route: 061
     Dates: start: 20120609, end: 20120610

REACTIONS (6)
  - RASH [None]
  - HYPERSENSITIVITY [None]
  - APPLICATION SITE PAIN [None]
  - APPLICATION SITE PRURITUS [None]
  - CELLULITIS [None]
  - SWELLING FACE [None]
